FAERS Safety Report 18933230 (Version 1)
Quarter: 2021Q1

REPORT INFORMATION
  Report Type: Other
  Country: IN (occurrence: IN)
  Receive Date: 20210224
  Receipt Date: 20210224
  Transmission Date: 20210420
  Serious: Yes (Other)
  Sender: FDA-Public Use
  Company Number: IN-ROCHE-2771484

PATIENT
  Age: 69 Year
  Sex: Male

DRUGS (6)
  1. VALGANCICLOVIR. [Suspect]
     Active Substance: VALGANCICLOVIR
     Indication: CYTOMEGALOVIRUS CHORIORETINITIS
     Dosage: 1800 MG ONCE A DAY
     Route: 048
  2. DEFLAZACORT [Suspect]
     Active Substance: DEFLAZACORT
     Indication: IMMUNOSUPPRESSION
     Route: 048
  3. GANCICLOVIR. [Suspect]
     Active Substance: GANCICLOVIR
     Indication: CYTOMEGALOVIRUS CHORIORETINITIS
     Dosage: 12 INTRAVITREAL INJECTIONS IN 3 MONTHS
     Route: 050
  4. RITUXIMAB. [Suspect]
     Active Substance: RITUXIMAB
     Indication: IMMUNOSUPPRESSION
     Dosage: EVERY 6 MONTHS
     Route: 041
  5. MYCOPHENOLATE MOFETIL. [Suspect]
     Active Substance: MYCOPHENOLATE MOFETIL
     Indication: IMMUNOSUPPRESSION
     Dosage: 2 G ONCE A DAY
     Route: 048
  6. METHOTREXATE. [Suspect]
     Active Substance: METHOTREXATE
     Indication: IMMUNOSUPPRESSION
     Route: 065

REACTIONS (5)
  - Product use issue [Unknown]
  - Off label use [Unknown]
  - Myelosuppression [Unknown]
  - Neutropenia [Unknown]
  - Cytomegalovirus infection [Unknown]
